FAERS Safety Report 24221636 (Version 2)
Quarter: 2024Q4

REPORT INFORMATION
  Report Type: Report from Study
  Country: US (occurrence: US)
  Receive Date: 20240819
  Receipt Date: 20241107
  Transmission Date: 20250114
  Serious: Yes (Other)
  Sender: RECORDATI
  Company Number: US-RECORDATI-2024006252

PATIENT

DRUGS (11)
  1. ISTURISA [Suspect]
     Active Substance: OSILODROSTAT PHOSPHATE
     Indication: Pituitary-dependent Cushing^s syndrome
     Dosage: 1 MG, BID
     Route: 048
     Dates: start: 20240113, end: 202410
  2. HERBALS\WITHANIA SOMNIFERA ROOT [Concomitant]
     Active Substance: HERBALS\WITHANIA SOMNIFERA ROOT
     Indication: Product used for unknown indication
  3. GLYXAMBI [Concomitant]
     Active Substance: EMPAGLIFLOZIN\LINAGLIPTIN
     Indication: Product used for unknown indication
  4. VITAMIN D3 [Concomitant]
     Active Substance: CHOLECALCIFEROL
     Indication: Product used for unknown indication
  5. AMLODIPINE [Concomitant]
     Active Substance: AMLODIPINE BESYLATE
     Indication: Product used for unknown indication
  6. ASPIRIN [Concomitant]
     Active Substance: ASPIRIN
     Indication: Product used for unknown indication
  7. ATORVASTATIN [Concomitant]
     Active Substance: ATORVASTATIN
     Indication: Product used for unknown indication
  8. CABERGOLINE [Concomitant]
     Active Substance: CABERGOLINE
     Indication: Product used for unknown indication
  9. HYDROCHLOROTHIAZIDE [Concomitant]
     Active Substance: HYDROCHLOROTHIAZIDE
     Indication: Product used for unknown indication
  10. ZINC [Concomitant]
     Active Substance: ZINC
     Indication: Product used for unknown indication
  11. FLECAINIDE [Concomitant]
     Active Substance: FLECAINIDE
     Indication: Product used for unknown indication

REACTIONS (1)
  - Chronic kidney disease [Recovering/Resolving]

NARRATIVE: CASE EVENT DATE: 20240701
